FAERS Safety Report 19480125 (Version 1)
Quarter: 2021Q3

REPORT INFORMATION
  Report Type: Spontaneous
  Country: NL (occurrence: NL)
  Receive Date: 20210701
  Receipt Date: 20210701
  Transmission Date: 20211014
  Serious: Yes (Other)
  Sender: FDA-Public Use
  Company Number: NL-TEVA-2021-NL-1926992

PATIENT
  Age: 71 Year
  Sex: Female
  Weight: 95 kg

DRUGS (4)
  1. HYDROXYCHLOROQUINE [HYDROXYCHLOROQUINE SULFATE] [Suspect]
     Active Substance: HYDROXYCHLOROQUINE SULFATE
     Indication: LICHEN PLANOPILARIS
     Dosage: 200 MILLIGRAM DAILY;
     Dates: start: 2021, end: 20210615
  2. SPIRONOLACTON TABLET 12,5MG / BRAND NAME NOT SPECIFIED [Concomitant]
     Active Substance: SPIRONOLACTONE
     Dosage: THERAPY START DATE ASKU, THERAPY END DATE ASKU, 12,5 MG
  3. DOXAZOSINE TABLET MGA 4MG / BRAND NAME NOT SPECIFIED [Concomitant]
     Active Substance: DOXAZOSIN MESYLATE
     Dosage: THERAPY START DATE ASKU, THERAPY END DATE ASKU
  4. HYDROCHLOORTHIAZIDE TABLET 12,5MG / BRAND NAME NOT SPECIFIED [Concomitant]
     Active Substance: HYDROCHLOROTHIAZIDE
     Dosage: THERAPY START DATE ASKU, THERAPY END DATE ASKU, 12,5 MG

REACTIONS (5)
  - Palpitations [Recovering/Resolving]
  - Tachycardia [Recovering/Resolving]
  - Polyuria [Recovering/Resolving]
  - Atrial fibrillation [Recovering/Resolving]
  - Dizziness [Recovering/Resolving]

NARRATIVE: CASE EVENT DATE: 20210615
